FAERS Safety Report 4810578-1 (Version None)
Quarter: 2005Q4

REPORT INFORMATION
  Report Type: 
  Country: None (occurrence: None)
  Receive Date: 20051024
  Receipt Date: 20051003
  Transmission Date: 20060501
  Serious: Yes (Other)
  Sender: FDA-Public Use
  Company Number: JP_051007763

PATIENT
  Age: 55 Year
  Sex: Male

DRUGS (4)
  1. ZYPREXA [Suspect]
     Indication: SCHIZOPHRENIA
     Dates: start: 20050101
  2. ZOTEPINE [Concomitant]
  3. RISPERDAL [Concomitant]
  4. LIMAS (LITHIUM CARBONATE) [Concomitant]

REACTIONS (1)
  - DEEP VEIN THROMBOSIS [None]
